FAERS Safety Report 10163253 (Version 1)
Quarter: 2014Q2

REPORT INFORMATION
  Report Type: Spontaneous
  Country: US (occurrence: US)
  Receive Date: 20140509
  Receipt Date: 20140509
  Transmission Date: 20141212
  Serious: Yes (Other)
  Sender: FDA-Public Use
  Company Number: US-JNJFOC-20140419745

PATIENT
  Sex: Female
  Weight: 67.13 kg

DRUGS (2)
  1. SIMPONI [Suspect]
     Indication: PSORIASIS
     Route: 058
     Dates: start: 2013, end: 2014
  2. HUMIRA [Suspect]
     Indication: PSORIASIS
     Route: 050
     Dates: start: 2012, end: 2013

REACTIONS (2)
  - Psoriatic arthropathy [Unknown]
  - Alopecia [Unknown]
